FAERS Safety Report 12760669 (Version 1)
Quarter: 2016Q3

REPORT INFORMATION
  Report Type: Spontaneous
  Country: US (occurrence: US)
  Receive Date: 20160919
  Receipt Date: 20160919
  Transmission Date: 20161109
  Serious: Yes (Other)
  Sender: FDA-Public Use
  Company Number: US-BAUSCH-BL-2016-021616

PATIENT
  Age: 65 Year
  Sex: Female

DRUGS (2)
  1. ADDYI [Suspect]
     Active Substance: FLIBANSERIN
     Indication: LIBIDO DECREASED
     Route: 065
  2. AMBIEN [Suspect]
     Active Substance: ZOLPIDEM TARTRATE
     Indication: SLEEP DISORDER
     Route: 065

REACTIONS (9)
  - Plastic surgery [Unknown]
  - Therapeutic response unexpected [Unknown]
  - Product use issue [Unknown]
  - Infection [Recovering/Resolving]
  - Sleep disorder [Unknown]
  - Drug dose omission [Unknown]
  - Post procedural complication [Unknown]
  - Malaise [Recovering/Resolving]
  - Pain [Unknown]
